FAERS Safety Report 17114395 (Version 1)
Quarter: 2019Q4

REPORT INFORMATION
  Report Type: Spontaneous
  Country: CN (occurrence: CN)
  Receive Date: 20191205
  Receipt Date: 20191205
  Transmission Date: 20200122
  Serious: Yes (Hospitalization, Other)
  Sender: FDA-Public Use
  Company Number: CN-ACCORD-164082

PATIENT
  Age: 70 Year
  Sex: Male

DRUGS (2)
  1. DOCETAXEL. [Suspect]
     Active Substance: DOCETAXEL
     Indication: LUNG ADENOCARCINOMA
  2. NEDAPLATIN [Suspect]
     Active Substance: NEDAPLATIN
     Indication: LUNG ADENOCARCINOMA

REACTIONS (2)
  - Tumour necrosis [Unknown]
  - Infection [Unknown]
